FAERS Safety Report 6648094-7 (Version None)
Quarter: 2010Q1

REPORT INFORMATION
  Report Type: 
  Country: None (occurrence: None)
  Receive Date: 20100324
  Receipt Date: 20100322
  Transmission Date: 20100710
  Serious: Yes (Life-Threatening, Hospitalization, Other)
  Sender: FDA-Public Use
  Company Number: PHHY2009BR55430

PATIENT
  Age: 31 Year
  Sex: Male
  Weight: 105 kg

DRUGS (2)
  1. LEPONEX [Suspect]
     Indication: SCHIZOPHRENIA
     Dosage: 1 TABLET IN THE MORNING, 1 TABLET AT NOON AND 1.5 TABLET AT NIGHT
     Route: 048
     Dates: start: 20080101
  2. LEPONEX [Suspect]
     Dosage: UNK
     Dates: start: 20091212

REACTIONS (4)
  - AGGRESSION [None]
  - DISEASE PROGRESSION [None]
  - HAEMORRHAGE [None]
  - TENDON INJURY [None]
